FAERS Safety Report 12187088 (Version 1)
Quarter: 2016Q1

REPORT INFORMATION
  Report Type: Spontaneous
  Country: US (occurrence: None)
  Receive Date: 20160316
  Receipt Date: 20160316
  Transmission Date: 20160526
  Serious: Yes (Other)
  Sender: FDA-Public Use
  Company Number: None

PATIENT
  Sex: Female

DRUGS (1)
  1. PROLIA [Suspect]
     Active Substance: DENOSUMAB
     Indication: SENILE OSTEOPOROSIS
     Dosage: 60MG 16MONTHS SUBCUTANEOUSLY
     Route: 058
     Dates: start: 201503

REACTIONS (3)
  - Pain in extremity [None]
  - Back pain [None]
  - Chest pain [None]
